FAERS Safety Report 7031096-9 (Version None)
Quarter: 2010Q4

REPORT INFORMATION
  Report Type: 
  Country: None (occurrence: None)
  Receive Date: 20101001
  Receipt Date: 20100915
  Transmission Date: 20110411
  Serious: Yes (Other)
  Sender: FDA-Public Use
  Company Number: PHHY2010JP61614

PATIENT
  Age: 80 Year
  Sex: Male

DRUGS (3)
  1. VISUDYNE [Suspect]
     Indication: POLYPOIDAL CHOROIDAL VASCULOPATHY
  2. BEVACIZUMAB [Suspect]
     Dosage: 1.25 MG ONCE EY
  3. TRIAMCINOLONE ACETONIDE [Suspect]
     Indication: POLYPOIDAL CHOROIDAL VASCULOPATHY

REACTIONS (5)
  - MACULAR HOLE [None]
  - RETINAL EXUDATES [None]
  - RETINAL HAEMORRHAGE [None]
  - VISUAL ACUITY REDUCED [None]
  - VITREOUS DETACHMENT [None]
